FAERS Safety Report 6968313-7 (Version None)
Quarter: 2010Q3

REPORT INFORMATION
  Report Type: 
  Country: None (occurrence: None)
  Receive Date: 20100901
  Receipt Date: 20100824
  Transmission Date: 20110219
  Serious: Yes (Hospitalization)
  Sender: FDA-Public Use
  Company Number: USA/USA/10/0015309

PATIENT
  Age: 80 Year
  Sex: Female

DRUGS (4)
  1. LEVETIRACETAM [Suspect]
     Indication: GRAND MAL CONVULSION
     Dosage: 1000 MG, 2 IN 1 D, PER ORAL
     Route: 048
     Dates: start: 20080401
  2. AMLODIPINE [Concomitant]
  3. TELMISARTAN [Concomitant]
  4. LEVOTHYROXINE [Concomitant]

REACTIONS (3)
  - ACTIVITIES OF DAILY LIVING IMPAIRED [None]
  - DELIRIUM [None]
  - IDIOSYNCRATIC DRUG REACTION [None]
